FAERS Safety Report 25341616 (Version 2)
Quarter: 2025Q2

REPORT INFORMATION
  Report Type: Spontaneous
  Country: IT (occurrence: IT)
  Receive Date: 20250521
  Receipt Date: 20250529
  Transmission Date: 20250717
  Serious: Yes (Other)
  Sender: TEVA
  Company Number: IT-TEVA-VS-3331717

PATIENT
  Age: 26 Year
  Sex: Male
  Weight: 77 kg

DRUGS (14)
  1. LERCANIDIPINE [Suspect]
     Active Substance: LERCANIDIPINE
     Indication: Hypertension
     Route: 065
  2. DEXAMETHASONE [Interacting]
     Active Substance: DEXAMETHASONE
     Indication: Adrenogenital syndrome
     Dosage: AT BEDTIME
     Route: 065
     Dates: start: 2014, end: 2014
  3. DEXAMETHASONE [Interacting]
     Active Substance: DEXAMETHASONE
     Indication: Adrenogenital syndrome
     Dosage: AT BEDTIME
     Route: 065
     Dates: start: 2014, end: 2014
  4. DEXAMETHASONE [Interacting]
     Active Substance: DEXAMETHASONE
     Indication: Adrenogenital syndrome
     Route: 065
  5. LISINOPRIL [Suspect]
     Active Substance: LISINOPRIL
     Indication: Hypertension
     Route: 065
     Dates: start: 2014
  6. CANRENONE [Suspect]
     Active Substance: CANRENONE
     Indication: Hypertension
     Route: 065
  7. CANRENONE [Suspect]
     Active Substance: CANRENONE
     Indication: Hypertension
     Route: 065
     Dates: start: 2014
  8. CANRENONE [Suspect]
     Active Substance: CANRENONE
     Indication: Hypertension
     Route: 065
     Dates: start: 2014
  9. CARBAMAZEPINE [Interacting]
     Active Substance: CARBAMAZEPINE
     Indication: Partial seizures
     Route: 065
  10. CLONIDINE [Suspect]
     Active Substance: CLONIDINE
     Indication: Hypertension
     Route: 065
     Dates: start: 2014
  11. PERAMPANEL [Concomitant]
     Active Substance: PERAMPANEL
     Indication: Partial seizures
     Route: 065
  12. VALPROIC ACID [Interacting]
     Active Substance: VALPROIC ACID
     Indication: Partial seizures
     Route: 065
  13. AMLODIPINE [Suspect]
     Active Substance: AMLODIPINE BESYLATE
     Indication: Hypertension
     Route: 065
     Dates: start: 2014
  14. INDAPAMIDE [Suspect]
     Active Substance: INDAPAMIDE
     Indication: Hypertension
     Route: 065
     Dates: start: 2014

REACTIONS (2)
  - Drug ineffective [Unknown]
  - Drug interaction [Unknown]

NARRATIVE: CASE EVENT DATE: 20140101
